FAERS Safety Report 4526644-4 (Version None)
Quarter: 2004Q4

REPORT INFORMATION
  Report Type: 
  Country: None (occurrence: None)
  Receive Date: 20041214
  Receipt Date: 20041209
  Transmission Date: 20050328
  Serious: Yes (Other)
  Sender: FDA-Public Use
  Company Number: US-GLAXOSMITHKLINE-A0536785A

PATIENT
  Sex: Male

DRUGS (1)
  1. CEFAZOLIN [Suspect]
     Indication: ILL-DEFINED DISORDER
     Route: 037

REACTIONS (2)
  - CONVULSION [None]
  - MEDICATION ERROR [None]
